FAERS Safety Report 8228642-6 (Version None)
Quarter: 2012Q1

REPORT INFORMATION
  Report Type: 
  Country: None (occurrence: None)
  Receive Date: 20120322
  Receipt Date: 20110214
  Transmission Date: 20120608
  Serious: No
  Sender: FDA-Public Use
  Company Number: US-BRISTOL-MYERS SQUIBB COMPANY-15549827

PATIENT
  Age: 75 Year
  Sex: Male

DRUGS (1)
  1. ERBITUX [Suspect]
     Dosage: 250MG/M2
     Route: 042
     Dates: start: 20100810

REACTIONS (2)
  - PRURITUS [None]
  - DERMATITIS ACNEIFORM [None]
